FAERS Safety Report 19899588 (Version 1)
Quarter: 2021Q3

REPORT INFORMATION
  Report Type: Spontaneous
  Country: DE (occurrence: DE)
  Receive Date: 20210929
  Receipt Date: 20210929
  Transmission Date: 20211014
  Serious: Yes (Hospitalization)
  Sender: FDA-Public Use
  Company Number: DE-MYLANLABS-2021M1066565

PATIENT
  Age: 57 Year
  Sex: Female

DRUGS (17)
  1. BISOPROLOL [Concomitant]
     Active Substance: BISOPROLOL
     Dosage: 2.5 MG, 0?0?1?0, TABLETTEN
     Route: 048
  2. VIGANTOLETTEN [Concomitant]
     Active Substance: CHOLECALCIFEROL
     Dosage: 1000 IE, 1?0?0?0, TABLETTEN
     Route: 048
  3. METAMIZOL                          /06276701/ [Concomitant]
     Active Substance: METAMIZOLE
     Dosage: 500 MG, 2?2?2?0, TABLETTEN
     Route: 048
  4. NEUROTRAT S [Concomitant]
     Active Substance: PYRIDOXINE\THIAMINE
     Dosage: 100 MG, 1?0?1?0, TABLETTEN
     Route: 048
  5. LACTULOSE AL [Concomitant]
     Active Substance: LACTULOSE
     Dosage: BEI BEDARF, EINL?UFE
  6. CALCIUM                            /07357001/ [Concomitant]
     Dosage: 2?0?0?0, BRAUSETABLETTEN
     Route: 048
  7. REKAWAN [Concomitant]
     Active Substance: POTASSIUM CHLORIDE
     Dosage: 600 MG, 3?3?3?0, RETARD?TABLETTEN
     Route: 048
  8. APIXABAN [Concomitant]
     Active Substance: APIXABAN
     Dosage: 2.5 MG, 1?0?1?0, TABLETTEN
     Route: 048
  9. FUROSEMIDE. [Suspect]
     Active Substance: FUROSEMIDE
     Indication: PRODUCT USED FOR UNKNOWN INDICATION
     Dosage: 40 MG, 2?2?0.5?0, TABLETTEN
     Route: 048
  10. LANTUS [Concomitant]
     Active Substance: INSULIN GLARGINE
     Dosage: 16 IE, 0?0?16?0, INJEKTIONS?/INFUSIONSL?SUNG
     Route: 058
  11. HUMALOG [Concomitant]
     Active Substance: INSULIN LISPRO
     Dosage: NACH BZ IE, NACH EIGENEM SCHEMA, INJEKTIONS?/INFUSIONSL?SUNG
     Route: 058
  12. PANTOPRAZOL                        /01263201/ [Concomitant]
     Active Substance: PANTOPRAZOLE
     Dosage: 40 MG, 1?0?0?0, TABLETTEN
     Route: 048
  13. XIPAMID [Suspect]
     Active Substance: XIPAMIDE
     Indication: PRODUCT USED FOR UNKNOWN INDICATION
     Dosage: 10 MG, 1?0?0?0, TABLETTEN
     Route: 048
  14. HEPA?MERZ                          /01390204/ [Concomitant]
     Active Substance: ORNITHINE ASPARTATE
     Dosage: 1?1?1?0, TABLETTEN
     Route: 048
  15. TARGIN [Concomitant]
     Active Substance: NALOXONE HYDROCHLORIDE\OXYCODONE HYDROCHLORIDE
     Dosage: 5 PER 10 MG, 1?0?1?0, TABLETTEN
     Route: 048
  16. SPIRONOLACTONE. [Suspect]
     Active Substance: SPIRONOLACTONE
     Indication: PRODUCT USED FOR UNKNOWN INDICATION
     Dosage: 50 MG, 2?2?0?0, TABLETTEN
     Route: 048
  17. L?THYROXIN                         /00068001/ [Concomitant]
     Active Substance: LEVOTHYROXINE
     Dosage: 100 ?G, 1.5?0?0?0, TABLETTEN
     Route: 048

REACTIONS (3)
  - Oedema peripheral [Unknown]
  - Pain [Unknown]
  - Weight increased [Unknown]
